FAERS Safety Report 5015352-1 (Version None)
Quarter: 2006Q2

REPORT INFORMATION
  Report Type: 
  Country: None (occurrence: None)
  Receive Date: 20060530
  Receipt Date: 20060530
  Transmission Date: 20061013
  Serious: Yes (Hospitalization)
  Sender: FDA-Public Use
  Company Number: None

PATIENT
  Age: 51 Year
  Sex: Female
  Weight: 65.318 kg

DRUGS (4)
  1. ERLOTINIB HYDROCHLORIDE 100MG ORALLY EVERY DAY [Suspect]
     Indication: MUCOSAL INFLAMMATION
  2. BEVACIZUMAB 10MG/M2 IV EVERY 2 WEEKS [Suspect]
     Indication: PAIN
  3. CISPLATIN [Concomitant]
  4. RADIATION THERAPY [Concomitant]

REACTIONS (6)
  - BREAKTHROUGH PAIN [None]
  - EAR PAIN [None]
  - INADEQUATE ANALGESIA [None]
  - MUCOSAL INFLAMMATION [None]
  - NECK PAIN [None]
  - TRISMUS [None]
